FAERS Safety Report 4769004-3 (Version None)
Quarter: 2005Q3

REPORT INFORMATION
  Report Type: 
  Country: None (occurrence: None)
  Receive Date: 20050913
  Receipt Date: 20050831
  Transmission Date: 20060218
  Serious: Yes (Other)
  Sender: FDA-Public Use
  Company Number: 2005123489

PATIENT
  Age: 80 Year
  Sex: Male

DRUGS (6)
  1. HYDROXYZINE PAMOATE [Suspect]
     Indication: ILL-DEFINED DISORDER
     Dosage: ORAL
     Route: 048
  2. OTHER COLD COMBINATION PREPARATIONS (OTHER COLD COMBINATION PREPARATIO [Suspect]
     Indication: ILL-DEFINED DISORDER
     Dosage: ORAL
     Route: 048
  3. KAKKON-TO (HERBAL EXTRACTS NOS) [Suspect]
     Indication: ILL-DEFINED DISORDER
     Dosage: ORAL
     Route: 048
     Dates: start: 19950101
  4. CYCLOSPORINE [Suspect]
     Indication: PSORIASIS
  5. OTHER ANTITUSIVES AND EXPECTORANTS (OTHER ANTITUSIVES AND EXPECTORANTS [Suspect]
     Indication: ILL-DEFINED DISORDER
     Dosage: ORAL
     Route: 048
     Dates: start: 19970101
  6. SYOSEIRYUTO (HERBAL EXTRACTS NOS) [Suspect]
     Indication: ILL-DEFINED DISORDER
     Dosage: ORAL
     Route: 048
     Dates: start: 19970101

REACTIONS (9)
  - CONDITION AGGRAVATED [None]
  - DERMATITIS EXFOLIATIVE [None]
  - DISEASE RECURRENCE [None]
  - DRUG ADMINISTRATION ERROR [None]
  - DRUG RESISTANCE [None]
  - LARGE INTESTINE CARCINOMA [None]
  - LYMPHOCYTE STIMULATION TEST POSITIVE [None]
  - PUSTULAR PSORIASIS [None]
  - SKIN TEST POSITIVE [None]
